FAERS Safety Report 13039068 (Version 1)
Quarter: 2016Q4

REPORT INFORMATION
  Report Type: Spontaneous
  Country: US (occurrence: US)
  Receive Date: 20161219
  Receipt Date: 20161219
  Transmission Date: 20170207
  Serious: Yes (Other)
  Sender: FDA-Public Use
  Company Number: US-ELI_LILLY_AND_COMPANY-US201612002803

PATIENT
  Age: 67 Year
  Sex: Male

DRUGS (2)
  1. ALIMTA [Suspect]
     Active Substance: PEMETREXED DISODIUM
     Indication: MESOTHELIOMA
     Dosage: UNK, CYCLICAL
     Route: 065
     Dates: start: 201608, end: 201611
  2. CISPLATIN. [Concomitant]
     Active Substance: CISPLATIN
     Indication: MESOTHELIOMA
     Dosage: UNK, CYCLICAL
     Route: 065

REACTIONS (2)
  - Drug ineffective [Unknown]
  - Malignant neoplasm progression [Unknown]
